FAERS Safety Report 5294948-6 (Version None)
Quarter: 2007Q2

REPORT INFORMATION
  Report Type: 
  Country: None (occurrence: None)
  Receive Date: 20070412
  Receipt Date: 20060911
  Transmission Date: 20071010
  Serious: Yes (Other)
  Sender: FDA-Public Use
  Company Number: 200614670EU

PATIENT
  Sex: Female

DRUGS (3)
  1. NICORETTE [Suspect]
     Indication: DRUG USE FOR UNKNOWN INDICATION
     Route: 002
     Dates: start: 20040101
  2. VENLAFAXINE HCL [Concomitant]
     Indication: DEPRESSION
  3. BROMAZEPAM [Concomitant]
     Indication: DEPRESSION

REACTIONS (2)
  - DRUG DEPENDENCE [None]
  - OVERDOSE [None]
